FAERS Safety Report 8940201 (Version 1)
Quarter: 2012Q4

REPORT INFORMATION
  Report Type: 
  Country: GR (occurrence: GR)
  Receive Date: 20121130
  Receipt Date: 20121130
  Transmission Date: 20130627
  Serious: Yes (Other)
  Sender: FDA-Public Use
  Company Number: GR-ABBOTT-12P-066-1012759-00

PATIENT
  Sex: Female

DRUGS (1)
  1. KLARICID [Suspect]
     Indication: DERMAL CYST
     Route: 048
     Dates: start: 20121019, end: 20121022

REACTIONS (5)
  - Syncope [Recovered/Resolved]
  - Palpitations [Recovered/Resolved]
  - Tremor [Recovered/Resolved]
  - Visual impairment [Recovered/Resolved]
  - Hyperhidrosis [Recovered/Resolved]
